FAERS Safety Report 9032589 (Version 1)
Quarter: 2013Q1

REPORT INFORMATION
  Report Type: Spontaneous
  Country: US (occurrence: US)
  Receive Date: 20130122
  Receipt Date: 20130122
  Transmission Date: 20140127
  Serious: No
  Sender: FDA-Public Use
  Company Number: US-PFIZER INC-2013024283

PATIENT
  Age: 57 Year
  Sex: Female
  Weight: 70.3 kg

DRUGS (1)
  1. ZINECARD [Suspect]
     Indication: BREAST CANCER
     Dosage: 1000 MG/M2, EVERY 2 HOURS
     Dates: start: 20130116

REACTIONS (1)
  - Injection site phlebitis [Not Recovered/Not Resolved]
